FAERS Safety Report 5576527-6 (Version None)
Quarter: 2007Q4

REPORT INFORMATION
  Report Type: 
  Country: None (occurrence: None)
  Receive Date: 20071228
  Receipt Date: 20071221
  Transmission Date: 20080405
  Serious: Yes (Other)
  Sender: FDA-Public Use
  Company Number: B0497625A

PATIENT
  Sex: Female

DRUGS (3)
  1. ZOPHREN [Suspect]
     Dosage: 32MG PER DAY
     Route: 042
     Dates: start: 20071114, end: 20071114
  2. APREPITANT [Suspect]
     Dosage: 125MG PER DAY
     Route: 048
     Dates: start: 20071114, end: 20071114
  3. DEXAMETASONA [Concomitant]
     Dosage: 12MG PER DAY
     Route: 048
     Dates: start: 20071114, end: 20071114

REACTIONS (3)
  - DISORIENTATION [None]
  - HYPERHIDROSIS [None]
  - SYNCOPE VASOVAGAL [None]
